FAERS Safety Report 9206591 (Version 4)
Quarter: 2013Q4

REPORT INFORMATION
  Report Type: Spontaneous
  Country: GB (occurrence: GB)
  Receive Date: 20130403
  Receipt Date: 20131007
  Transmission Date: 20140711
  Serious: Yes (Hospitalization, Other)
  Sender: FDA-Public Use
  Company Number: GB-PFIZER INC-2000011049GB

PATIENT
  Age: 60 Year
  Sex: Male

DRUGS (3)
  1. MOTRIN IB [Suspect]
     Dosage: 8000 MG, SINGLE (20 IBUPROFEN 400 MG/TAB)
     Route: 048
  2. GLIBENCLAMIDE [Suspect]
     Dosage: 100 MG, SINGLE (20 TABS, 5 MG/TAB)
     Route: 048
  3. METFORMIN HCL [Suspect]
     Dosage: 50000 MG, SINGLE (100 TABS, 500 MG/TAB)
     Route: 048

REACTIONS (11)
  - Intentional overdose [Recovered/Resolved]
  - Lactic acidosis [Recovered/Resolved]
  - Ventricular fibrillation [Recovered/Resolved]
  - Apnoea [Recovered/Resolved]
  - Tachypnoea [Recovered/Resolved]
  - Anuria [Recovered/Resolved]
  - Polyuria [Recovered/Resolved]
  - Abdominal pain [Recovered/Resolved]
  - Agitation [Recovered/Resolved]
  - Sedation [Recovered/Resolved]
  - Vomiting [Recovered/Resolved]
